FAERS Safety Report 26207752 (Version 1)
Quarter: 2025Q4

REPORT INFORMATION
  Report Type: Spontaneous
  Country: EU (occurrence: EU)
  Receive Date: 20251229
  Receipt Date: 20251229
  Transmission Date: 20260117
  Serious: Yes (Other)
  Sender: AMGEN
  Company Number: EU-AMGEN-ITASP2025253699

PATIENT
  Age: 8 Decade
  Sex: Female

DRUGS (13)
  1. BEVACIZUMAB [Suspect]
     Active Substance: BEVACIZUMAB
     Indication: Adenocarcinoma of colon
     Dosage: UNK
     Route: 065
     Dates: start: 202203
  2. BEVACIZUMAB [Suspect]
     Active Substance: BEVACIZUMAB
     Indication: Metastases to bone
     Dosage: UNK (FOR SIX CYCLES)
     Route: 065
     Dates: start: 202401
  3. XGEVA [Suspect]
     Active Substance: DENOSUMAB
     Indication: Adenocarcinoma of colon
     Dosage: UNK
     Route: 065
     Dates: start: 202203
  4. XGEVA [Suspect]
     Active Substance: DENOSUMAB
     Indication: Metastases to bone
     Dosage: UNK (FOR SIX CYCLES)
     Route: 065
     Dates: start: 202401
  5. LEUCOVORIN [Concomitant]
     Active Substance: LEUCOVORIN\LEUCOVORIN CALCIUM
     Indication: Adenocarcinoma of colon
     Dosage: FOR 6 MONTHS
  6. LEUCOVORIN [Concomitant]
     Active Substance: LEUCOVORIN\LEUCOVORIN CALCIUM
     Indication: Metastases to bone
     Dosage: UNK
     Dates: start: 202203
  7. LEUCOVORIN [Concomitant]
     Active Substance: LEUCOVORIN\LEUCOVORIN CALCIUM
     Dosage: UNK (FOR SIX CYCLES)
     Dates: start: 202401
  8. FLUOROURACIL [Concomitant]
     Active Substance: FLUOROURACIL
     Indication: Adenocarcinoma of colon
     Dosage: FOR 6 MONTHS
  9. FLUOROURACIL [Concomitant]
     Active Substance: FLUOROURACIL
     Indication: Metastases to bone
     Dosage: UNK
     Dates: start: 202203
  10. FLUOROURACIL [Concomitant]
     Active Substance: FLUOROURACIL
     Dosage: UNK (FOR SIX CYCLES)
     Dates: start: 202401
  11. OXALIPLATIN [Concomitant]
     Active Substance: OXALIPLATIN
     Indication: Adenocarcinoma of colon
     Dosage: FOR 6 MONTHS
  12. IRINOTECAN [Concomitant]
     Active Substance: IRINOTECAN
     Indication: Adenocarcinoma of colon
     Dosage: UNK
     Dates: start: 202203
  13. IRINOTECAN [Concomitant]
     Active Substance: IRINOTECAN
     Indication: Metastases to bone
     Dosage: UNK (FOR SIX CYCLES)
     Dates: start: 202401

REACTIONS (1)
  - Adenocarcinoma metastatic [Unknown]

NARRATIVE: CASE EVENT DATE: 20231201
